FAERS Safety Report 9632062 (Version 1)
Quarter: 2013Q4

REPORT INFORMATION
  Report Type: Spontaneous
  Country: US (occurrence: None)
  Receive Date: 20131017
  Receipt Date: 20131017
  Transmission Date: 20140711
  Serious: Yes (Disabling)
  Sender: FDA-Public Use
  Company Number: None

PATIENT
  Age: 42 Year
  Sex: Female
  Weight: 95.26 kg

DRUGS (2)
  1. CLONAZEPAM [Suspect]
     Indication: ANXIETY
     Dosage: 1 ONCE DAILY TAKEN BY MOUTH
     Route: 048
     Dates: start: 20130314, end: 20130920
  2. CLONAZEPAM [Suspect]
     Indication: INSOMNIA
     Dosage: 1 ONCE DAILY TAKEN BY MOUTH
     Route: 048
     Dates: start: 20130314, end: 20130920

REACTIONS (14)
  - Anxiety [None]
  - Headache [None]
  - Tremor [None]
  - Crying [None]
  - Nervous system disorder [None]
  - Muscle spasms [None]
  - Dizziness [None]
  - Palpitations [None]
  - Depression [None]
  - Insomnia [None]
  - Dyspepsia [None]
  - Vision blurred [None]
  - Decreased appetite [None]
  - Impaired work ability [None]
